FAERS Safety Report 23576141 (Version 2)
Quarter: 2024Q1

REPORT INFORMATION
  Report Type: Other
  Country: PK (occurrence: None)
  Receive Date: 20240228
  Receipt Date: 20240229
  Transmission Date: 20240410
  Serious: Yes (Hospitalization)
  Sender: FDA-Public Use
  Company Number: PK-ROCHE-3514504

PATIENT
  Age: 63 Year
  Sex: Male

DRUGS (1)
  1. RITUXIMAB [Suspect]
     Active Substance: RITUXIMAB
     Indication: Diffuse large B-cell lymphoma
     Route: 041
     Dates: start: 20231221, end: 20240206

REACTIONS (3)
  - Echocardiogram abnormal [Unknown]
  - Hypertension [Unknown]
  - Dyspnoea [Unknown]
